FAERS Safety Report 7031487-6 (Version None)
Quarter: 2010Q4

REPORT INFORMATION
  Report Type: 
  Country: None (occurrence: None)
  Receive Date: 20101005
  Receipt Date: 20101005
  Transmission Date: 20110411
  Serious: No
  Sender: FDA-Public Use
  Company Number: None

PATIENT
  Sex: Male
  Weight: 88.5 kg

DRUGS (2)
  1. CARBOPLATIN [Suspect]
     Dosage: 650 MG
     Dates: end: 20100928
  2. TAXOL [Suspect]
     Dosage: 50 MG
     Dates: end: 20100928

REACTIONS (2)
  - HYPERSENSITIVITY [None]
  - INFUSION RELATED REACTION [None]
